FAERS Safety Report 17736496 (Version 1)
Quarter: 2020Q2

REPORT INFORMATION
  Report Type: Spontaneous
  Country: US (occurrence: US)
  Receive Date: 20200501
  Receipt Date: 20200501
  Transmission Date: 20200714
  Serious: No
  Sender: FDA-Public Use
  Company Number: US-ANIPHARMA-2019-US-013968

PATIENT
  Age: 75 Year
  Sex: Female
  Weight: 97.52 kg

DRUGS (22)
  1. GLIMEPERIDE [Suspect]
     Active Substance: GLIMEPIRIDE
     Dosage: TAKE 1 TABLET DAILY
  2. MECLIZINE [Suspect]
     Active Substance: MECLIZINE HYDROCHLORIDE
     Dosage: TAKE AS NEEDED
  3. PROPRANOLOL [Suspect]
     Active Substance: PROPRANOLOL HYDROCHLORIDE
     Indication: PRODUCT USED FOR UNKNOWN INDICATION
     Dosage: TAKE 1 CAPSULE DAILY
     Route: 048
  4. LETROZOLE. [Suspect]
     Active Substance: LETROZOLE
     Dosage: TAKE 1 TABLET DAILY
  5. POTASSIUM CHLORIDE EXTENDED RELEASE [Suspect]
     Active Substance: POTASSIUM CHLORIDE
     Dosage: TAKE 3 CAPSULED THREE TIMES DAILY
     Route: 048
  6. WARFARIN SODIUM. [Suspect]
     Active Substance: WARFARIN SODIUM
     Dosage: TAKE 1 TABLET AS DIRECTED DAILY
  7. SLOW MAG [Suspect]
     Active Substance: MAGNESIUM CHLORIDE
     Dosage: TAKE 1/2 TAB PER WEEK
  8. CYCLOBENZAPRINE HCL [Suspect]
     Active Substance: CYCLOBENZAPRINE HYDROCHLORIDE
     Dosage: TAKE 1 TABLET THREE TIMES DAILY AS NEEDED
  9. DONEZEPIL HCL [Suspect]
     Active Substance: DONEPEZIL HYDROCHLORIDE
     Dosage: TAKE 1 TABLET DAILY AS DIRECTED
  10. FUROSEMIDE. [Suspect]
     Active Substance: FUROSEMIDE
     Dosage: TAKE 2 TABLETS ONCE DAILY
  11. HYDROCODONE-ACETAMINOPHEN [Suspect]
     Active Substance: ACETAMINOPHEN\HYDROCODONE
     Dosage: TAKE 1-2 TABLETS EVERY 6 HOURS AS NEEDED
     Route: 048
  12. METOLAZONE. [Suspect]
     Active Substance: METOLAZONE
     Dosage: TAKE 1 TABLET DAILY
  13. SIMVASTATIN. [Suspect]
     Active Substance: SIMVASTATIN
     Dosage: TAKE 1 TABLET DAILY
  14. IRON [Suspect]
     Active Substance: IRON
     Dosage: TAKE 1 TABLET EVERY OTHER DAY
  15. FENTANYL. [Suspect]
     Active Substance: FENTANYL
     Dosage: APPLY 1 PATCH EVERY 3 DAYS
  16. VITAMIN B12 [Suspect]
     Active Substance: CYANOCOBALAMIN
     Dosage: UNK
  17. ROPINIROLE HCL [Suspect]
     Active Substance: ROPINIROLE HYDROCHLORIDE
     Dosage: TAKE 1 TABLET FOUR TIMES DAILY
  18. IBRANCE [Suspect]
     Active Substance: PALBOCICLIB
     Dosage: 125 MG DAILY FOR 21 DAYS
     Dates: start: 20190612
  19. GABAPENTIN. [Suspect]
     Active Substance: GABAPENTIN
     Dosage: TAKE 2 TABLETS THREE TIMES A DAY AS NEEDED
  20. DRONABINOL. [Suspect]
     Active Substance: DRONABINOL
     Dosage: TAKE 2 TABLETS DAILY
  21. WARFARIN SODIUM. [Suspect]
     Active Substance: WARFARIN SODIUM
     Dosage: TAKE 2 TABLETS DAILY
  22. AMITRIPTYLINE [Suspect]
     Active Substance: AMITRIPTYLINE
     Dosage: TAKE 1 TABLET DAILY

REACTIONS (2)
  - Nausea [Unknown]
  - Diarrhoea [Unknown]

NARRATIVE: CASE EVENT DATE: 20190614
